FAERS Safety Report 11467806 (Version 2)
Quarter: 2015Q4

REPORT INFORMATION
  Report Type: Spontaneous
  Country: JP (occurrence: JP)
  Receive Date: 20150908
  Receipt Date: 20151102
  Transmission Date: 20160304
  Serious: Yes (Death)
  Sender: FDA-Public Use
  Company Number: JP-ELI_LILLY_AND_COMPANY-JP201509001117

PATIENT
  Age: 74 Year
  Sex: Female
  Weight: 44 kg

DRUGS (8)
  1. MAGMITT [Concomitant]
     Active Substance: MAGNESIUM OXIDE
     Indication: CONSTIPATION
     Dosage: UNK
     Route: 048
     Dates: start: 20150701, end: 20150807
  2. PACLITAXEL. [Concomitant]
     Active Substance: PACLITAXEL
     Indication: GASTRIC CANCER STAGE IV
     Dosage: UNK
     Route: 042
     Dates: start: 20150702, end: 20150721
  3. LASIX [Concomitant]
     Active Substance: FUROSEMIDE
     Indication: ASCITES
     Dosage: UNK
     Route: 048
     Dates: start: 20150701, end: 20150807
  4. ALDACTONE [Concomitant]
     Active Substance: SPIRONOLACTONE
     Indication: ASCITES
     Dosage: UNK
     Route: 048
     Dates: start: 20150701, end: 20150807
  5. ABSTRAL [Concomitant]
     Active Substance: FENTANYL CITRATE
     Indication: PAIN
     Dosage: UNK
     Route: 048
     Dates: start: 20150701, end: 20150807
  6. RINDERON                           /00008501/ [Concomitant]
     Active Substance: BETAMETHASONE
     Indication: MALAISE
     Dosage: UNK
     Route: 048
     Dates: start: 20150701, end: 20150807
  7. FENTANYL. [Concomitant]
     Active Substance: FENTANYL
     Indication: PAIN
     Dosage: UNK
     Dates: start: 20150701, end: 20150807
  8. CYRAMZA [Suspect]
     Active Substance: RAMUCIRUMAB
     Indication: GASTRIC CANCER STAGE IV
     Dosage: UNK
     Route: 042
     Dates: start: 20150702, end: 20150721

REACTIONS (2)
  - Malignant neoplasm progression [Fatal]
  - White blood cell count decreased [Recovered/Resolved]

NARRATIVE: CASE EVENT DATE: 20150714
